FAERS Safety Report 8224419-6 (Version None)
Quarter: 2012Q1

REPORT INFORMATION
  Report Type: 
  Country: None (occurrence: None)
  Receive Date: 20120321
  Receipt Date: 20120313
  Transmission Date: 20120608
  Serious: Yes (Death, Other)
  Sender: FDA-Public Use
  Company Number: SE-CELGENEUS-150-20785-12031493

PATIENT

DRUGS (2)
  1. DEXAMETHASONE [Suspect]
     Dosage: 40 MILLIGRAM
     Route: 048
  2. THALIDOMIDE [Suspect]
     Dosage: ESCALATED BY 50 MG EVERY 3 WEEKS
     Route: 048

REACTIONS (30)
  - DEEP VEIN THROMBOSIS [None]
  - NEUTROPENIA [None]
  - VERTIGO [None]
  - SKIN REACTION [None]
  - INTESTINAL GANGRENE [None]
  - TRANSIENT ISCHAEMIC ATTACK [None]
  - CARDIAC FAILURE [None]
  - HALLUCINATION, VISUAL [None]
  - PULMONARY EMBOLISM [None]
  - NEURALGIA [None]
  - VOMITING [None]
  - SOMNOLENCE [None]
  - TOXICITY TO VARIOUS AGENTS [None]
  - DIARRHOEA [None]
  - HAEMORRHAGIC STROKE [None]
  - TREATMENT FAILURE [None]
  - THROMBOCYTOPENIA [None]
  - NAUSEA [None]
  - HERPES ZOSTER [None]
  - HERPES SIMPLEX [None]
  - ISCHAEMIC STROKE [None]
  - HAEMORRHAGE [None]
  - TYPE 1 DIABETES MELLITUS [None]
  - PERIPHERAL MOTOR NEUROPATHY [None]
  - PYREXIA [None]
  - ANXIETY [None]
  - PNEUMONIA [None]
  - INFECTION [None]
  - PERIPHERAL SENSORY NEUROPATHY [None]
  - CONSTIPATION [None]
